FAERS Safety Report 7137732-0 (Version None)
Quarter: 2010Q4

REPORT INFORMATION
  Report Type: 
  Country: None (occurrence: None)
  Receive Date: 20101206
  Receipt Date: 20101122
  Transmission Date: 20110411
  Serious: Yes (Other)
  Sender: FDA-Public Use
  Company Number: PHHY2010BR80145

PATIENT
  Sex: Female

DRUGS (3)
  1. RASILEZ HCT [Suspect]
     Route: 048
  2. RASILEZ HCT [Suspect]
     Dosage: 300/12.5MG
  3. ARADOIS [Suspect]

REACTIONS (3)
  - CATHETERISATION CARDIAC [None]
  - HYPERTENSION [None]
  - MALAISE [None]
